FAERS Safety Report 7301437-3 (Version None)
Quarter: 2011Q1

REPORT INFORMATION
  Report Type: 
  Country: None (occurrence: None)
  Receive Date: 20110113
  Receipt Date: 20101012
  Transmission Date: 20110831
  Serious: No
  Sender: FDA-Public Use
  Company Number: US-001335

PATIENT
  Sex: Female
  Weight: 70.3 kg

DRUGS (2)
  1. CONTRACEPTIVES NOS [Concomitant]
  2. KUVAN [Suspect]
     Indication: PHENYLKETONURIA
     Dosage: 20 MG/KG QD ORAL
     Route: 048
     Dates: start: 20080801

REACTIONS (1)
  - DEPRESSION [None]
